FAERS Safety Report 15140325 (Version 1)
Quarter: 2018Q3

REPORT INFORMATION
  Report Type: Other
  Country: KR (occurrence: KR)
  Receive Date: 20180713
  Receipt Date: 20180713
  Transmission Date: 20181010
  Serious: Yes (Other)
  Sender: FDA-Public Use
  Company Number: KR-APPCO PHARMA LLC-2051944

PATIENT
  Age: 40 Year
  Sex: Female

DRUGS (1)
  1. HYDROXYCHLOROQUINE SULFATE. [Suspect]
     Active Substance: HYDROXYCHLOROQUINE SULFATE
     Indication: SYSTEMIC LUPUS ERYTHEMATOSUS
     Route: 065

REACTIONS (2)
  - Cystoid macular oedema [Recovered/Resolved]
  - Retinal toxicity [Recovered/Resolved]
